FAERS Safety Report 8012543 (Version 4)
Quarter: 2013Q4

REPORT INFORMATION
  Report Type: Spontaneous
  Country: US (occurrence: US)
  Receive Date: 20110628
  Receipt Date: 20131004
  Transmission Date: 20140711
  Serious: Yes (Hospitalization, Other)
  Sender: FDA-Public Use
  Company Number: US-BAYER-2011-052221

PATIENT
  Age: 44 Year
  Sex: Female
  Weight: 70.3 kg

DRUGS (6)
  1. YAZ [Suspect]
     Indication: CONTRACEPTION
     Dosage: UNK
     Route: 048
     Dates: start: 200809, end: 200902
  2. LEXAPRO [Concomitant]
     Indication: DEPRESSION
  3. AMBIEN [Concomitant]
  4. ZOLPIDEM [Concomitant]
  5. CLONAZEPAM [Concomitant]
  6. CIPROFLOXACIN [Concomitant]
     Dosage: 500 MG, UNK
     Route: 048
     Dates: start: 20081118

REACTIONS (6)
  - Transient ischaemic attack [None]
  - Cholecystectomy [None]
  - Cholecystitis chronic [None]
  - Pain [None]
  - Anxiety [None]
  - Depression [None]
